FAERS Safety Report 4914266-2 (Version None)
Quarter: 2006Q1

REPORT INFORMATION
  Report Type: 
  Country: None (occurrence: None)
  Receive Date: 20060113
  Receipt Date: 20051107
  Transmission Date: 20060701
  Serious: No
  Sender: FDA-Public Use
  Company Number: 2005SP003871

PATIENT
  Age: 61 Year
  Sex: Female

DRUGS (6)
  1. LUNESTA [Suspect]
     Indication: INSOMNIA
     Dosage: 2 MG; 1X; ORAL
     Route: 048
     Dates: start: 20051008, end: 20051008
  2. METOPROLOL [Concomitant]
  3. ALTACE [Concomitant]
  4. AMBIEN [Concomitant]
  5. DIPHENHYDRAMINE [Concomitant]
  6. HYDROCHLORIDE [Concomitant]

REACTIONS (2)
  - DIARRHOEA [None]
  - VOMITING [None]
